FAERS Safety Report 5152533-0 (Version None)
Quarter: 2006Q4

REPORT INFORMATION
  Report Type: 
  Country: None (occurrence: None)
  Receive Date: 20061109
  Receipt Date: 20061030
  Transmission Date: 20070319
  Serious: Yes (Hospitalization)
  Sender: FDA-Public Use
  Company Number: 2006AL002095

PATIENT
  Age: 83 Year
  Sex: Male

DRUGS (1)
  1. METFORMIN HYDROCHLORIDE [Suspect]
     Indication: DIABETES MELLITUS NON-INSULIN-DEPENDENT
     Dosage: 2000 MG; PO
     Route: 048

REACTIONS (6)
  - ABDOMINAL PAIN [None]
  - HAEMODIALYSIS [None]
  - HYPOTENSION [None]
  - LACTIC ACIDOSIS [None]
  - RENAL FAILURE ACUTE [None]
  - VOMITING [None]
